FAERS Safety Report 21257363 (Version 1)
Quarter: 2022Q3

REPORT INFORMATION
  Report Type: Spontaneous
  Country: None (occurrence: US)
  Receive Date: 20220826
  Receipt Date: 20220826
  Transmission Date: 20221026
  Serious: No
  Sender: FDA-Public Use
  Company Number: US-ITALFARMACO SPA-2132252

PATIENT
  Age: 65 Year
  Sex: Female

DRUGS (12)
  1. TIGLUTIK [Suspect]
     Active Substance: RILUZOLE
     Indication: Amyotrophic lateral sclerosis
     Route: 048
     Dates: start: 20210326, end: 20220601
  2. ASPIRIN [Concomitant]
     Active Substance: ASPIRIN
  3. MIRTAZAPINE [Concomitant]
     Active Substance: MIRTAZAPINE
  4. MOTRIN [Concomitant]
     Active Substance: IBUPROFEN
  5. MULTIVITAMINUM (VITAMINS NOS) [Concomitant]
  6. SYNTHROID [Concomitant]
     Active Substance: LEVOTHYROXINE SODIUM
  7. HERBALS\TURMERIC [Concomitant]
     Active Substance: HERBALS\TURMERIC
  8. ATROPINE [Concomitant]
     Active Substance: ATROPINE
  9. CANNABIDIOL\HERBALS [Concomitant]
     Active Substance: CANNABIDIOL\HERBALS
  10. COLLAGEN (COLLAGEN) [Concomitant]
  11. CYCLOBENZAPRINE [Concomitant]
     Active Substance: CYCLOBENZAPRINE
  12. MIRALAX [Concomitant]
     Active Substance: POLYETHYLENE GLYCOL 3350

REACTIONS (1)
  - Hepatic enzyme increased [Unknown]
